FAERS Safety Report 8972274 (Version 1)
Quarter: 2012Q4

REPORT INFORMATION
  Report Type: Report from Study
  Country: FR (occurrence: FR)
  Receive Date: 20121218
  Receipt Date: 20121218
  Transmission Date: 20130627
  Serious: Yes (Hospitalization)
  Sender: FDA-Public Use
  Company Number: FR-ROCHE-1170914

PATIENT
  Age: 76 Year
  Sex: Male

DRUGS (3)
  1. RITUXIMAB [Suspect]
     Indication: CHRONIC LYMPHOCYTIC LEUKAEMIA
     Route: 041
  2. ENDOXAN [Concomitant]
     Route: 002
  3. FLUDARA [Concomitant]
     Route: 002
     Dates: start: 20110912

REACTIONS (1)
  - Osteomyelitis [Recovered/Resolved with Sequelae]
